FAERS Safety Report 7334663-8 (Version None)
Quarter: 2011Q1

REPORT INFORMATION
  Report Type: 
  Country: None (occurrence: None)
  Receive Date: 20110307
  Receipt Date: 20110221
  Transmission Date: 20110831
  Serious: Yes (Hospitalization)
  Sender: FDA-Public Use
  Company Number: US-BAYER-201027418NA

PATIENT
  Sex: Female
  Weight: 61.364 kg

DRUGS (4)
  1. YASMIN [Suspect]
     Indication: CONTRACEPTION
     Route: 048
     Dates: start: 20050101, end: 20100101
  2. OCELLA [Suspect]
     Indication: CONTRACEPTION
     Dates: start: 20050101, end: 20100101
  3. MOTRIN [Concomitant]
     Dosage: TWICE A MONTH
  4. YAZ [Suspect]
     Indication: PRODUCT USED FOR UNKNOWN INDICATION
     Route: 048

REACTIONS (2)
  - ABDOMINAL PAIN UPPER [None]
  - CHOLECYSTECTOMY [None]
